FAERS Safety Report 5927108-3 (Version None)
Quarter: 2008Q4

REPORT INFORMATION
  Report Type: 
  Country: None (occurrence: None)
  Receive Date: 20081022
  Receipt Date: 20081017
  Transmission Date: 20090506
  Serious: Yes (Hospitalization, Other)
  Sender: FDA-Public Use
  Company Number: NL-ROXANE LABORATORIES, INC.-2008-RO-00140RO

PATIENT
  Age: 73 Year
  Sex: Male

DRUGS (3)
  1. CLARITHROMYCIN [Suspect]
     Indication: PNEUMONIA
  2. COLCHICINE [Suspect]
     Indication: GOUTY ARTHRITIS
     Dosage: .5MG
  3. SIMVASTATIN [Suspect]
     Dosage: 20MG

REACTIONS (4)
  - DRUG INTERACTION [None]
  - DRUG TOXICITY [None]
  - NEUROMYOPATHY [None]
  - PANCYTOPENIA [None]
